FAERS Safety Report 6054373-7 (Version None)
Quarter: 2009Q1

REPORT INFORMATION
  Report Type: 
  Country: None (occurrence: None)
  Receive Date: 20090123
  Receipt Date: 20090123
  Transmission Date: 20090719
  Serious: Yes (Other)
  Sender: FDA-Public Use
  Company Number: None

PATIENT
  Age: 47 Year
  Sex: Female
  Weight: 62.1428 kg

DRUGS (1)
  1. LEVOTHYROXINE SODIUM [Suspect]
     Indication: THYROID CANCER
     Dosage: 188MCG DAILY PO
     Route: 048
     Dates: start: 20071201, end: 20080901

REACTIONS (8)
  - ALOPECIA [None]
  - IMPAIRED HEALING [None]
  - NERVOUS SYSTEM DISORDER [None]
  - NEURITIS [None]
  - ONYCHOCLASIS [None]
  - POST PROCEDURAL COMPLICATION [None]
  - PRODUCT COUNTERFEIT [None]
  - SKIN DISORDER [None]
